FAERS Safety Report 20831948 (Version 3)
Quarter: 2022Q2

REPORT INFORMATION
  Report Type: Spontaneous
  Country: FR (occurrence: FR)
  Receive Date: 20220516
  Receipt Date: 20220526
  Transmission Date: 20220721
  Serious: Yes (Other)
  Sender: FDA-Public Use
  Company Number: FR-ADVANZ PHARMA-202205002761

PATIENT

DRUGS (2)
  1. ALFUZOSIN [Suspect]
     Active Substance: ALFUZOSIN
     Indication: Product used for unknown indication
     Dosage: 2.5 MG, Q8H (XATRAL LP PROLONGED-RELEASE TABLET)
     Route: 065
  2. ALFUZOSIN [Suspect]
     Active Substance: ALFUZOSIN
     Dosage: 2.5 MG, TID (XATRAL LP PROLONGED-RELEASE TABLET)
     Route: 065

REACTIONS (3)
  - Choking [Unknown]
  - Oropharyngeal discomfort [Unknown]
  - Product use complaint [Unknown]
